FAERS Safety Report 23198429 (Version 3)
Quarter: 2024Q1

REPORT INFORMATION
  Report Type: Spontaneous
  Country: US (occurrence: US)
  Receive Date: 20231117
  Receipt Date: 20240207
  Transmission Date: 20240409
  Serious: Yes (Other)
  Sender: FDA-Public Use
  Company Number: US-PFIZER INC-202300369732

PATIENT
  Age: 77 Year
  Sex: Male
  Weight: 113.38 kg

DRUGS (2)
  1. XELJANZ XR [Suspect]
     Active Substance: TOFACITINIB CITRATE
     Indication: Arthritis
     Dosage: 11 MG ONCE A DAY
     Route: 048
     Dates: start: 20231003
  2. XELJANZ XR [Suspect]
     Active Substance: TOFACITINIB CITRATE
     Indication: Eye inflammation

REACTIONS (2)
  - Polyarthritis [Unknown]
  - Visual impairment [Unknown]
